FAERS Safety Report 4341845-6 (Version None)
Quarter: 2004Q2

REPORT INFORMATION
  Report Type: 
  Country: None (occurrence: None)
  Receive Date: 20040415
  Receipt Date: 20040401
  Transmission Date: 20050107
  Serious: Yes (Other)
  Sender: FDA-Public Use
  Company Number: 2004-DE-01781PO

PATIENT
  Age: 60 Year
  Sex: Female

DRUGS (2)
  1. MOVALIS (MELOXICAM) (NR) (MELOXICAM) [Suspect]
     Dosage: 15 MG (15 MG, 1 IN 1 D) PO
     Route: 048
     Dates: start: 20040301, end: 20040301
  2. DOXICILINE (NR) [Concomitant]

REACTIONS (2)
  - GENERALISED OEDEMA [None]
  - TONGUE INJURY [None]
